FAERS Safety Report 12631671 (Version 2)
Quarter: 2016Q3

REPORT INFORMATION
  Report Type: Spontaneous
  Country: US (occurrence: US)
  Receive Date: 20160808
  Receipt Date: 20160808
  Transmission Date: 20161109
  Serious: No
  Sender: FDA-Public Use
  Company Number: US-BEH-2015055279

PATIENT
  Sex: Female
  Weight: 89 kg

DRUGS (53)
  1. HIZENTRA [Suspect]
     Active Substance: HUMAN IMMUNOGLOBULIN G
     Indication: IMMUNODEFICIENCY COMMON VARIABLE
  2. LMX [Concomitant]
     Active Substance: LIDOCAINE
  3. POTASSIUM CL [Concomitant]
     Active Substance: POTASSIUM CHLORIDE
     Dosage: TAB ER
  4. PULMICORT TURBUHALER [Concomitant]
     Active Substance: BUDESONIDE
     Dosage: FLEXHALER
  5. COQ10 [Concomitant]
     Active Substance: UBIDECARENONE
     Dosage: SG 100 SOFTGEL
  6. VITAMIN D [Concomitant]
     Active Substance: CHOLECALCIFEROL
     Dosage: SOFTGEL
  7. SPIRONOLACTONE. [Concomitant]
     Active Substance: SPIRONOLACTONE
  8. DIGOXIN. [Concomitant]
     Active Substance: DIGOXIN
  9. COMBIVENT [Concomitant]
     Active Substance: ALBUTEROL SULFATE\IPRATROPIUM BROMIDE
     Dosage: INHALER
  10. XOPENEX [Concomitant]
     Active Substance: LEVALBUTEROL HYDROCHLORIDE
     Dosage: 0.63 MG/3 ML SOLUTION
  11. FLEXERIL [Concomitant]
     Active Substance: CYCLOBENZAPRINE HYDROCHLORIDE
  12. GLUCOTEN [Concomitant]
  13. ALBUTEROL SULF HFA [Concomitant]
     Dosage: INH
  14. CALCIUM CITRATE [Concomitant]
     Active Substance: CALCIUM CITRATE
  15. ZYRTEC-D [Concomitant]
     Active Substance: CETIRIZINE HYDROCHLORIDE\PSEUDOEPHEDRINE HYDROCHLORIDE
  16. HIZENTRA [Suspect]
     Active Substance: HUMAN IMMUNOGLOBULIN G
     Route: 058
     Dates: start: 20110316
  17. EPI-PEN AUTOINJECTOR [Concomitant]
  18. PULMICORT TURBUHALER [Concomitant]
     Active Substance: BUDESONIDE
     Dosage: TURBUHALER
  19. OPTIVAR [Concomitant]
     Active Substance: AZELASTINE HYDROCHLORIDE
     Dosage: DROPS
  20. ALPRAZOLAM. [Concomitant]
     Active Substance: ALPRAZOLAM
  21. HYDROXYZINE HCL [Concomitant]
     Active Substance: HYDROXYZINE HYDROCHLORIDE
  22. HIZENTRA [Suspect]
     Active Substance: HUMAN IMMUNOGLOBULIN G
     Route: 058
     Dates: start: 20110902
  23. LIDOCAINE. [Concomitant]
     Active Substance: LIDOCAINE
  24. CALXIUM CITRATE [Concomitant]
  25. VITAMIN C [Concomitant]
     Active Substance: ASCORBIC ACID
  26. ANUSOL NOS [Concomitant]
     Active Substance: BALSAM PERU\BENZYL BENZOATE\BISMUTH HYDROXIDE\BISMUTH SUBGALLATE\HYDROCORTISONE ACETATE\ZINC OXIDE
  27. GLUCOTEN [Concomitant]
  28. BYSTOLIC [Concomitant]
     Active Substance: NEBIVOLOL HYDROCHLORIDE
  29. BETAMETHASONE. [Concomitant]
     Active Substance: BETAMETHASONE
     Dosage: VA LOTION
  30. PROMETHAZINE [Concomitant]
     Active Substance: PROMETHAZINE\PROMETHAZINE HYDROCHLORIDE
  31. DIPHENHYDRAMINE. [Concomitant]
     Active Substance: DIPHENHYDRAMINE
  32. PREMARIN [Concomitant]
     Active Substance: ESTROGENS, CONJUGATED
  33. ALBUTEROL. [Concomitant]
     Active Substance: ALBUTEROL
     Dosage: 2.5MG/0.5ML SOL
  34. GLUCOPHAGE [Concomitant]
     Active Substance: METFORMIN HYDROCHLORIDE
  35. APPEAREX [Concomitant]
  36. NASONEX [Concomitant]
     Active Substance: MOMETASONE FUROATE
  37. FERROUS GLUCONATE [Concomitant]
     Active Substance: FERROUS GLUCONATE
  38. MAXZIDE [Concomitant]
     Active Substance: HYDROCHLOROTHIAZIDE\TRIAMTERENE
  39. CYANOCOBALAMIN. [Concomitant]
     Active Substance: CYANOCOBALAMIN
     Dosage: 1000 MCG/ML
  40. SINGULAIR [Concomitant]
     Active Substance: MONTELUKAST SODIUM
  41. IMITREX [Concomitant]
     Active Substance: SUMATRIPTAN SUCCINATE
  42. HIZENTRA [Suspect]
     Active Substance: HUMAN IMMUNOGLOBULIN G
  43. TRIAMCINOLONE [Concomitant]
     Active Substance: TRIAMCINOLONE
  44. FIORICET-COD [Concomitant]
     Dosage: 30-50-325-40 CAP
  45. TAPAZOLE [Concomitant]
     Active Substance: METHIMAZOLE
  46. OXYGEN. [Concomitant]
     Active Substance: OXYGEN
  47. LASIX [Concomitant]
     Active Substance: FUROSEMIDE
  48. AMBIEN [Concomitant]
     Active Substance: ZOLPIDEM TARTRATE
  49. SEREVENT DISKUS [Concomitant]
     Active Substance: SALMETEROL XINAFOATE
     Dosage: SPRAY
  50. MAGNESIUM OXIDE. [Concomitant]
     Active Substance: MAGNESIUM OXIDE
  51. LIDODERM [Concomitant]
     Active Substance: LIDOCAINE
  52. PERCOCET [Concomitant]
     Active Substance: ACETAMINOPHEN\OXYCODONE HYDROCHLORIDE
     Dosage: 10-325 MG
  53. VITAMIN E [Concomitant]
     Active Substance: .ALPHA.-TOCOPHEROL

REACTIONS (1)
  - Sinusitis [Unknown]
